FAERS Safety Report 14558962 (Version 1)
Quarter: 2018Q1

REPORT INFORMATION
  Report Type: Spontaneous
  Country: US (occurrence: US)
  Receive Date: 20180221
  Receipt Date: 20180221
  Transmission Date: 20180509
  Serious: Yes (Other)
  Sender: FDA-Public Use
  Company Number: US-PFIZER INC-2018068954

PATIENT
  Age: 57 Year
  Sex: Female
  Weight: 56.7 kg

DRUGS (5)
  1. NEURONTIN [Concomitant]
     Active Substance: GABAPENTIN
     Indication: PAIN
     Dosage: 600 MG, 1X/DAY
  2. TYLENOL [Concomitant]
     Active Substance: ACETAMINOPHEN
     Indication: PAIN
     Dosage: 6 DF, DAILY
     Dates: start: 1987
  3. BACLOFEN. [Concomitant]
     Active Substance: BACLOFEN
     Indication: MUSCLE RELAXANT THERAPY
     Dosage: 20 MG, 2X/DAY (10MG TWO TABLETS TWICE PER DAY)
  4. LYRICA [Suspect]
     Active Substance: PREGABALIN
     Indication: FIBROMYALGIA
     Dosage: UNK
     Dates: start: 2014, end: 2014
  5. PROZAC [Concomitant]
     Active Substance: FLUOXETINE HYDROCHLORIDE
     Indication: DEPRESSION
     Dosage: 400 MG, 1X/DAY
     Dates: start: 1993

REACTIONS (5)
  - Movement disorder [Recovered/Resolved with Sequelae]
  - Partial seizures [Unknown]
  - Diplegia [Recovered/Resolved with Sequelae]
  - Dysphemia [Recovered/Resolved with Sequelae]
  - Paraesthesia [Recovering/Resolving]

NARRATIVE: CASE EVENT DATE: 2014
